FAERS Safety Report 19386950 (Version 1)
Quarter: 2021Q2

REPORT INFORMATION
  Report Type: Spontaneous
  Country: US (occurrence: US)
  Receive Date: 20210608
  Receipt Date: 20210608
  Transmission Date: 20210717
  Serious: Yes (Hospitalization, Other)
  Sender: FDA-Public Use
  Company Number: US-HIKMA PHARMACEUTICALS USA INC.-US-H14001-21-02543

PATIENT
  Age: 48 Year
  Sex: Female

DRUGS (1)
  1. PROMETHAZINE [Suspect]
     Active Substance: PROMETHAZINE HYDROCHLORIDE
     Indication: NAUSEA
     Dosage: UNKNOWN
     Route: 065

REACTIONS (4)
  - Poisoning [Unknown]
  - Suspected product tampering [Unknown]
  - Choking [Unknown]
  - Palpitations [Unknown]

NARRATIVE: CASE EVENT DATE: 20210525
